FAERS Safety Report 5682354-1 (Version None)
Quarter: 2008Q1

REPORT INFORMATION
  Report Type: 
  Country: None (occurrence: None)
  Receive Date: 20080327
  Receipt Date: 20080319
  Transmission Date: 20080703
  Serious: Yes (Death, Hospitalization)
  Sender: FDA-Public Use
  Company Number: VN-AVENTIS-200812300GDDC

PATIENT
  Age: 60 Year
  Sex: Female
  Weight: 51 kg

DRUGS (7)
  1. TAXOTERE [Suspect]
     Indication: BREAST CANCER
     Route: 042
     Dates: start: 20071227, end: 20071227
  2. FLUOROURACIL [Concomitant]
     Indication: BREAST CANCER
     Route: 042
     Dates: start: 20071025, end: 20071115
  3. FLUOROURACIL [Concomitant]
     Route: 042
     Dates: start: 20071206, end: 20071206
  4. EPIRUBICIN [Concomitant]
     Indication: BREAST CANCER
     Route: 042
     Dates: start: 20071025, end: 20071115
  5. EPIRUBICIN [Concomitant]
     Route: 042
     Dates: start: 20071206, end: 20071206
  6. CYCLOPHOSPHAMIDE [Concomitant]
     Indication: BREAST CANCER
     Route: 042
     Dates: start: 20071025, end: 20071115
  7. CYCLOPHOSPHAMIDE [Concomitant]
     Route: 042
     Dates: start: 20071206, end: 20071206

REACTIONS (4)
  - ABDOMINAL PAIN [None]
  - COMA HEPATIC [None]
  - JAUNDICE [None]
  - OEDEMA [None]
